FAERS Safety Report 8611765 (Version 4)
Quarter: 2012Q4

REPORT INFORMATION
  Report Type: 
  Country: US (occurrence: US)
  Receive Date: 20120613
  Receipt Date: 20121218
  Transmission Date: 20130627
  Serious: No
  Sender: FDA-Public Use
  Company Number: US-ASTRAZENECA-2011SE69752

PATIENT
  Age: 52 Year
  Sex: Female

DRUGS (4)
  1. RHINOCORT AQUA [Suspect]
     Route: 045
  2. RHINOCORT AQUA [Suspect]
     Dosage: 32 MCG TO INHALE ONE TIME VIA NOSTRIL DAILY.
     Route: 045
  3. RHINOCORT AQUA [Suspect]
     Dosage: 1-2 sprays, daily
     Route: 045
  4. NEXIUM [Concomitant]

REACTIONS (7)
  - Road traffic accident [Unknown]
  - Sinusitis [Unknown]
  - Multiple allergies [Unknown]
  - Malaise [Unknown]
  - Nasal congestion [Unknown]
  - Off label use [Unknown]
  - Drug dose omission [Unknown]
